FAERS Safety Report 5487831-4 (Version None)
Quarter: 2007Q3

REPORT INFORMATION
  Report Type: 
  Country: None (occurrence: None)
  Receive Date: 20070925
  Receipt Date: 20070718
  Transmission Date: 20080115
  Serious: No
  Sender: FDA-Public Use
  Company Number: 2007US000668

PATIENT
  Age: 51 Year
  Sex: Female

DRUGS (5)
  1. VESICARE [Suspect]
     Indication: HYPERTONIC BLADDER
     Dosage: 5 MG, UID/QD, ORAL 10 MG, UID/QD, ORAL
     Route: 048
     Dates: start: 20070301, end: 20070601
  2. VESICARE [Suspect]
     Indication: HYPERTONIC BLADDER
     Dosage: 5 MG, UID/QD, ORAL 10 MG, UID/QD, ORAL
     Route: 048
     Dates: start: 20070601
  3. ACIPHEX [Concomitant]
  4. ARMATHYROID [Concomitant]
  5. CLONIDINE [Concomitant]

REACTIONS (1)
  - DRUG INEFFECTIVE [None]
